FAERS Safety Report 16807705 (Version 2)
Quarter: 2019Q4

REPORT INFORMATION
  Report Type: Spontaneous
  Country: US (occurrence: US)
  Receive Date: 20190914
  Receipt Date: 20191103
  Transmission Date: 20200122
  Serious: No
  Sender: FDA-Public Use
  Company Number: US-009507513-1909USA003742

PATIENT
  Sex: Female
  Weight: 117.03 kg

DRUGS (2)
  1. NEXPLANON [Suspect]
     Active Substance: ETONOGESTREL
     Indication: CONTRACEPTION
     Dosage: 1 DOSAGE FORM, ONCE
     Route: 059
     Dates: start: 20190827, end: 20190905
  2. ERRIN [Concomitant]
     Active Substance: NORETHINDRONE
     Dosage: 1 TABLET EVERY DAY
     Route: 048
     Dates: start: 20190905

REACTIONS (5)
  - Device expulsion [Recovered/Resolved]
  - Product quality issue [Unknown]
  - Device kink [Recovered/Resolved]
  - Pain in extremity [Unknown]
  - Device breakage [Recovered/Resolved]

NARRATIVE: CASE EVENT DATE: 2019
